FAERS Safety Report 13216910 (Version 4)
Quarter: 2019Q1

REPORT INFORMATION
  Report Type: Spontaneous
  Country: US (occurrence: US)
  Receive Date: 20170210
  Receipt Date: 20190131
  Transmission Date: 20190417
  Serious: Yes (Hospitalization, Other)
  Sender: FDA-Public Use
  Company Number: US-BRISTOL-MYERS SQUIBB COMPANY-BMS-2017-008581

PATIENT
  Sex: Female

DRUGS (1)
  1. ORENCIA [Suspect]
     Active Substance: ABATACEPT
     Indication: RHEUMATOID ARTHRITIS
     Dosage: 125 MG, QWK (1 PEN WEEKLY)
     Route: 058
     Dates: start: 20161007

REACTIONS (4)
  - Pruritus [Unknown]
  - Hospitalisation [Unknown]
  - Skin discolouration [Unknown]
  - Rash [Unknown]
